FAERS Safety Report 6746706-0 (Version None)
Quarter: 2010Q2

REPORT INFORMATION
  Report Type: 
  Country: None (occurrence: None)
  Receive Date: 20100528
  Receipt Date: 20090422
  Transmission Date: 20101027
  Serious: No
  Sender: FDA-Public Use
  Company Number: A0780143A

PATIENT
  Age: 41 Year
  Sex: Female

DRUGS (6)
  1. VENTOLIN [Suspect]
     Indication: ASTHMA
     Dosage: 2PUFF AS REQUIRED
     Route: 055
     Dates: start: 20090101, end: 20090401
  2. SINGULAIR [Concomitant]
  3. PULMICORT [Concomitant]
  4. ALLEGRA [Concomitant]
  5. PREDNISONE TAB [Concomitant]
  6. PROVENTIL-HFA [Concomitant]

REACTIONS (2)
  - GLOSSITIS [None]
  - STOMATITIS [None]
